FAERS Safety Report 25673065 (Version 1)
Quarter: 2025Q3

REPORT INFORMATION
  Report Type: Spontaneous
  Country: US (occurrence: US)
  Receive Date: 20250813
  Receipt Date: 20250813
  Transmission Date: 20251021
  Serious: Yes (Hospitalization, Other)
  Sender: ALEXION PHARMACEUTICALS
  Company Number: US-ASTRAZENECA-202506USA026160US

PATIENT
  Sex: Male

DRUGS (23)
  1. TEZSPIRE [Suspect]
     Active Substance: TEZEPELUMAB-EKKO
     Dosage: 140 MILLIGRAM, QW
  2. TEZSPIRE [Suspect]
     Active Substance: TEZEPELUMAB-EKKO
  3. REPATHA [Suspect]
     Active Substance: EVOLOCUMAB
     Dosage: 140 MILLIGRAM, QW
  4. ALBUTEROL [Concomitant]
     Active Substance: ALBUTEROL
     Route: 065
  5. ASPIRIN [Concomitant]
     Active Substance: ASPIRIN
  6. COENZYME Q10 [Concomitant]
     Active Substance: DIETARY SUPPLEMENT\UBIDECARENONE
  7. FLUTICASONE [Concomitant]
     Active Substance: FLUTICASONE
  8. IBUPROFEN [Concomitant]
     Active Substance: IBUPROFEN
  9. LIDAMIDINE HYDROCHLORIDE [Concomitant]
     Active Substance: LIDAMIDINE HYDROCHLORIDE
  10. TESTOSTERONE [Concomitant]
     Active Substance: TESTOSTERONE
  11. VALSARTAN [Concomitant]
     Active Substance: VALSARTAN
  12. ALLOPURINOL [Concomitant]
     Active Substance: ALLOPURINOL
  13. APIXABAN [Concomitant]
     Active Substance: APIXABAN
  14. BENZONATATE [Concomitant]
     Active Substance: BENZONATATE
  15. CARVEDILOL [Concomitant]
     Active Substance: CARVEDILOL
  16. FUROSEMIDE [Concomitant]
     Active Substance: FUROSEMIDE
  17. HYDROCHLOROTHIAZIDE [Concomitant]
     Active Substance: HYDROCHLOROTHIAZIDE
  18. METOPROLOL TARTRATE [Concomitant]
     Active Substance: METOPROLOL TARTRATE
  19. PREVACID [Concomitant]
     Active Substance: LANSOPRAZOLE
  20. TADALAFIL [Concomitant]
     Active Substance: TADALAFIL
  21. TRAZODONE [Concomitant]
     Active Substance: TRAZODONE HYDROCHLORIDE
  22. VITAMIN D [Concomitant]
     Active Substance: VITAMIN D NOS
  23. AIRSUPRA [Suspect]
     Active Substance: ALBUTEROL SULFATE\BUDESONIDE
     Route: 065

REACTIONS (8)
  - Asthma [Unknown]
  - Cardiomyopathy [Unknown]
  - Pulmonary fibrosis [Unknown]
  - Pulmonary congestion [Unknown]
  - Obstructive sleep apnoea syndrome [Unknown]
  - Pneumonia [Recovered/Resolved]
  - Transient ischaemic attack [Unknown]
  - Pulmonary oedema [Recovered/Resolved]
